FAERS Safety Report 8183813-2 (Version None)
Quarter: 2012Q1

REPORT INFORMATION
  Report Type: 
  Country: None (occurrence: None)
  Receive Date: 20120305
  Receipt Date: 20120229
  Transmission Date: 20120608
  Serious: Yes (Hospitalization)
  Sender: FDA-Public Use
  Company Number: JP-SANOFI-AVENTIS-2011SA076126

PATIENT
  Age: 61 Year
  Sex: Male

DRUGS (2)
  1. ATENOLOL AND CHLORTHALIDONE [Suspect]
     Indication: CEREBRAL INFARCTION
     Route: 065
     Dates: start: 20110101
  2. ACETYLSALICYLIC ACID SRT [Suspect]
     Indication: CEREBRAL INFARCTION
     Route: 065
     Dates: start: 20110101

REACTIONS (5)
  - DEPRESSED LEVEL OF CONSCIOUSNESS [None]
  - HAEMORRHAGIC CYST [None]
  - HYDROCEPHALUS [None]
  - HEADACHE [None]
  - DIPLOPIA [None]
